FAERS Safety Report 5418292-9 (Version None)
Quarter: 2007Q3

REPORT INFORMATION
  Report Type: 
  Country: None (occurrence: None)
  Receive Date: 20070817
  Receipt Date: 20070808
  Transmission Date: 20080115
  Serious: Yes (Hospitalization)
  Sender: FDA-Public Use
  Company Number: BR-GENENTECH-244247

PATIENT
  Sex: Female
  Weight: 63.4 kg

DRUGS (4)
  1. BEVACIZUMAB [Suspect]
     Indication: BREAST CANCER METASTATIC
     Dosage: 582 MG, Q2W
     Route: 042
     Dates: start: 20070403, end: 20070731
  2. GEMCITABINE HCL [Concomitant]
     Indication: BREAST CANCER METASTATIC
     Dosage: 1590 MG, Q2W
     Route: 042
     Dates: start: 20070403
  3. VINORELBINE [Concomitant]
     Indication: BREAST CANCER METASTATIC
     Dosage: 40 MG, Q2W
     Route: 042
     Dates: start: 20070403
  4. ZOLEDRONIC ACID [Concomitant]
     Indication: DRUG USE FOR UNKNOWN INDICATION
     Dosage: 4 MG, QD
     Dates: start: 20070403

REACTIONS (4)
  - CARDIAC FAILURE [None]
  - DYSPNOEA [None]
  - HYPERTENSION [None]
  - PULMONARY OEDEMA [None]
